FAERS Safety Report 21636074 (Version 1)
Quarter: 2022Q4

REPORT INFORMATION
  Report Type: Spontaneous
  Country: KE (occurrence: KE)
  Receive Date: 20221123
  Receipt Date: 20221123
  Transmission Date: 20230113
  Serious: Yes (Hospitalization)
  Sender: FDA-Public Use
  Company Number: KE-STRIDES ARCOLAB LIMITED-2022SP015654

PATIENT
  Age: 17 Year
  Sex: Female

DRUGS (1)
  1. METHOTREXATE [Suspect]
     Active Substance: METHOTREXATE
     Indication: Takayasu^s arteritis
     Dosage: 25 MILLIGRAM PER DAY (WEEKLY DOSE WAS PRESCRIBED BUT SHE TOOK DAILY DUE TO MEDICATION ERROR)
     Route: 065

REACTIONS (12)
  - Odynophagia [Recovered/Resolved]
  - Feeding intolerance [Recovered/Resolved]
  - Gingival ulceration [Recovered/Resolved]
  - Tongue ulceration [Recovered/Resolved]
  - Mucosal inflammation [Recovered/Resolved]
  - Abdominal tenderness [Recovered/Resolved]
  - Incorrect product administration duration [Unknown]
  - Toxicity to various agents [Unknown]
  - Mouth ulceration [Recovered/Resolved]
  - Oral pain [Recovered/Resolved]
  - Abdominal pain [Recovered/Resolved]
  - Off label use [Unknown]
